FAERS Safety Report 4955165-X (Version None)
Quarter: 2006Q1

REPORT INFORMATION
  Report Type: 
  Country: None (occurrence: None)
  Receive Date: 20060322
  Receipt Date: 20060310
  Transmission Date: 20060701
  Serious: Yes (Death, Hospitalization)
  Sender: FDA-Public Use
  Company Number: 2006JP000621

PATIENT
  Age: 41 Year
  Sex: Male
  Weight: 37 kg

DRUGS (17)
  1. TACROLIMUS GRANULE (TACROLIMUS GRANULE) [Suspect]
     Indication: HEART TRANSPLANT
     Dosage: SEE IMAGE, ORAL
     Route: 048
     Dates: start: 20041201, end: 20041201
  2. TACROLIMUS GRANULE (TACROLIMUS GRANULE) [Suspect]
     Indication: HEART TRANSPLANT
     Dosage: SEE IMAGE, ORAL
     Route: 048
     Dates: start: 20041202, end: 20041205
  3. TACROLIMUS GRANULE (TACROLIMUS GRANULE) [Suspect]
     Indication: HEART TRANSPLANT
     Dosage: SEE IMAGE, ORAL
     Route: 048
     Dates: start: 20041206, end: 20041206
  4. TACROLIMUS GRANULE (TACROLIMUS GRANULE) [Suspect]
     Indication: HEART TRANSPLANT
     Dosage: SEE IMAGE, ORAL
     Route: 048
     Dates: start: 20041207, end: 20041207
  5. TACROLIMUS GRANULE (TACROLIMUS GRANULE) [Suspect]
     Indication: HEART TRANSPLANT
     Dosage: SEE IMAGE, ORAL
     Route: 048
     Dates: start: 20041208, end: 20041208
  6. TACROLIMUS GRANULE (TACROLIMUS GRANULE) [Suspect]
     Indication: HEART TRANSPLANT
     Dosage: SEE IMAGE, ORAL
     Route: 048
     Dates: start: 20041209, end: 20041214
  7. TACROLIMUS GRANULE (TACROLIMUS GRANULE) [Suspect]
     Indication: HEART TRANSPLANT
     Dosage: SEE IMAGE, ORAL
     Route: 048
     Dates: start: 20041215, end: 20041217
  8. TACROLIMUS GRANULE (TACROLIMUS GRANULE) [Suspect]
     Indication: HEART TRANSPLANT
     Dosage: SEE IMAGE, ORAL
     Route: 048
     Dates: start: 20041219, end: 20050103
  9. TACROLIMUS GRANULE (TACROLIMUS GRANULE) [Suspect]
     Indication: HEART TRANSPLANT
     Dosage: SEE IMAGE, ORAL
     Route: 048
     Dates: start: 20041218, end: 20050118
  10. TACROLIMUS GRANULE (TACROLIMUS GRANULE) [Suspect]
     Indication: HEART TRANSPLANT
     Dosage: SEE IMAGE, ORAL
     Route: 048
     Dates: start: 20050104, end: 20050301
  11. TACROLIMUS GRANULE (TACROLIMUS GRANULE) [Suspect]
     Indication: HEART TRANSPLANT
     Dosage: SEE IMAGE, ORAL
     Route: 048
     Dates: start: 20050312, end: 20050312
  12. CELLCEPT [Concomitant]
  13. PREDNISOLONE [Concomitant]
  14. RITUXAN [Concomitant]
  15. CYCLOPHOSPHAMIDE [Concomitant]
  16. LYMPHOGLOBULINE (ANTITHYMOCYTE IMMUNOGLOBULIN) INJECTION [Concomitant]
  17. DOPAMINE (DOPAMINE) INJECTION [Concomitant]

REACTIONS (7)
  - CANDIDIASIS [None]
  - CARDIAC FAILURE [None]
  - COMPLICATIONS OF TRANSPLANTED HEART [None]
  - HERPES ZOSTER [None]
  - PNEUMONIA ASPIRATION [None]
  - PNEUMONIA FUNGAL [None]
  - POST PROCEDURAL COMPLICATION [None]
